FAERS Safety Report 13962219 (Version 2)
Quarter: 2018Q1

REPORT INFORMATION
  Report Type: Report from Study
  Country: US (occurrence: US)
  Receive Date: 20170912
  Receipt Date: 20180323
  Transmission Date: 20180508
  Serious: Yes (Other)
  Sender: FDA-Public Use
  Company Number: US-JAZZ-2017-US-011646

PATIENT
  Sex: Female

DRUGS (32)
  1. XYREM [Suspect]
     Active Substance: SODIUM OXYBATE
     Dosage: 4.5 G, QD, FIRST DOSE
     Route: 048
     Dates: start: 201610
  2. NICODERM CQ [Suspect]
     Active Substance: NICOTINE
     Indication: PRODUCT USED FOR UNKNOWN INDICATION
  3. ARMODAFINIL. [Concomitant]
     Active Substance: ARMODAFINIL
     Indication: PRODUCT USED FOR UNKNOWN INDICATION
     Dosage: UNK
     Dates: end: 201210
  4. LISINOPRIL. [Concomitant]
     Active Substance: LISINOPRIL
     Indication: PRODUCT USED FOR UNKNOWN INDICATION
     Dosage: UNK
     Dates: end: 201604
  5. NORCO [Concomitant]
     Active Substance: ACETAMINOPHEN\HYDROCODONE BITARTRATE
     Indication: PRODUCT USED FOR UNKNOWN INDICATION
     Dosage: UNK
     Dates: end: 201410
  6. PREDNISONE. [Concomitant]
     Active Substance: PREDNISONE
     Indication: PRODUCT USED FOR UNKNOWN INDICATION
  7. XYREM [Suspect]
     Active Substance: SODIUM OXYBATE
     Indication: CATAPLEXY
     Dosage: DOSE ADJUSTMENT
     Route: 048
     Dates: start: 2013, end: 201610
  8. LORATADINE. [Concomitant]
     Active Substance: LORATADINE
     Indication: PRODUCT USED FOR UNKNOWN INDICATION
     Dosage: UNK
     Dates: start: 20120401
  9. BENADRYL ALLERGY [Concomitant]
     Active Substance: DIPHENHYDRAMINE HYDROCHLORIDE
     Indication: PRODUCT USED FOR UNKNOWN INDICATION
  10. CHANTIX [Concomitant]
     Active Substance: VARENICLINE TARTRATE
     Indication: PRODUCT USED FOR UNKNOWN INDICATION
     Dosage: UNK
     Dates: start: 201510
  11. METOCLOPRAMIDE. [Concomitant]
     Active Substance: METOCLOPRAMIDE
     Indication: PRODUCT USED FOR UNKNOWN INDICATION
     Dosage: UNK
     Dates: end: 201510
  12. METOPROLOL SUCC CT [Concomitant]
     Indication: PRODUCT USED FOR UNKNOWN INDICATION
  13. TRILEPTAL [Concomitant]
     Active Substance: OXCARBAZEPINE
     Indication: PRODUCT USED FOR UNKNOWN INDICATION
  14. HYDROXYZINE HCL [Concomitant]
     Active Substance: HYDROXYZINE HYDROCHLORIDE
     Indication: PRODUCT USED FOR UNKNOWN INDICATION
     Dosage: UNK
     Dates: start: 20150702
  15. ATORVASTATIN [Concomitant]
     Active Substance: ATORVASTATIN
     Indication: PRODUCT USED FOR UNKNOWN INDICATION
     Dosage: UNK
     Dates: start: 20130101
  16. METFORMIN HCL [Concomitant]
     Active Substance: METFORMIN HYDROCHLORIDE
     Indication: PRODUCT USED FOR UNKNOWN INDICATION
     Dosage: UNK
     Dates: start: 20130729
  17. RANITIDINE. [Concomitant]
     Active Substance: RANITIDINE
     Indication: PRODUCT USED FOR UNKNOWN INDICATION
     Dosage: UNK
     Dates: end: 201702
  18. XYREM [Suspect]
     Active Substance: SODIUM OXYBATE
     Indication: NARCOLEPSY
     Dosage: 2.25 G, BID
     Route: 048
     Dates: start: 201307, end: 2013
  19. OMEPRAZOLE. [Concomitant]
     Active Substance: OMEPRAZOLE
     Indication: PRODUCT USED FOR UNKNOWN INDICATION
     Dosage: UNK
     Dates: start: 20120701
  20. REQUIP [Concomitant]
     Active Substance: ROPINIROLE HYDROCHLORIDE
     Indication: PRODUCT USED FOR UNKNOWN INDICATION
     Dosage: UNK
     Dates: start: 20110101, end: 201307
  21. ADDERALL [Concomitant]
     Active Substance: AMPHETAMINE ASPARTATE\AMPHETAMINE SULFATE\DEXTROAMPHETAMINE SACCHARATE\DEXTROAMPHETAMINE SULFATE
     Indication: PRODUCT USED FOR UNKNOWN INDICATION
     Dosage: UNK
     Dates: end: 201610
  22. HYDRALAZINE [Concomitant]
     Active Substance: HYDRALAZINE HYDROCHLORIDE
     Indication: PRODUCT USED FOR UNKNOWN INDICATION
  23. RITALIN [Concomitant]
     Active Substance: METHYLPHENIDATE HYDROCHLORIDE
     Dosage: 20 MG
     Dates: end: 201410
  24. XYREM [Suspect]
     Active Substance: SODIUM OXYBATE
     Dosage: 3.75 G, QD, SECOND DOSE
     Route: 048
     Dates: start: 201610
  25. OXCARBAZEPINE. [Concomitant]
     Active Substance: OXCARBAZEPINE
     Indication: PRODUCT USED FOR UNKNOWN INDICATION
     Dosage: UNK
     Dates: start: 20121201, end: 20130906
  26. VIIBRYD [Concomitant]
     Active Substance: VILAZODONE HYDROCHLORIDE
     Indication: PRODUCT USED FOR UNKNOWN INDICATION
     Dosage: UNK
     Dates: start: 20100701
  27. GLYCOLAX [Concomitant]
     Active Substance: POLYETHYLENE GLYCOL 3350
     Indication: PRODUCT USED FOR UNKNOWN INDICATION
     Dosage: UNK
     Dates: end: 201610
  28. RITALIN [Concomitant]
     Active Substance: METHYLPHENIDATE HYDROCHLORIDE
     Indication: PRODUCT USED FOR UNKNOWN INDICATION
     Dosage: 10 MG
     Dates: end: 201410
  29. FUROSEMIDE. [Suspect]
     Active Substance: FUROSEMIDE
     Indication: SWELLING
  30. IBUPROFEN. [Concomitant]
     Active Substance: IBUPROFEN
     Indication: PRODUCT USED FOR UNKNOWN INDICATION
  31. CYCLOBENZAPRINE. [Concomitant]
     Active Substance: CYCLOBENZAPRINE
     Indication: PRODUCT USED FOR UNKNOWN INDICATION
     Dosage: UNK
     Dates: end: 201410
  32. ZALEPLON. [Concomitant]
     Active Substance: ZALEPLON
     Indication: PRODUCT USED FOR UNKNOWN INDICATION
     Dosage: UNK
     Dates: end: 201610

REACTIONS (14)
  - Rectal haemorrhage [Recovered/Resolved]
  - Pre-existing condition improved [Unknown]
  - Diarrhoea [Recovered/Resolved]
  - Drug ineffective [Unknown]
  - Urticaria [Unknown]
  - Palpitations [Not Recovered/Not Resolved]
  - Blood glucose abnormal [Recovering/Resolving]
  - Swelling [Unknown]
  - Anxiety [Recovering/Resolving]
  - Coordination abnormal [Unknown]
  - Contusion [Recovering/Resolving]
  - Dehydration [Unknown]
  - Heart rate abnormal [Not Recovered/Not Resolved]
  - Muscle spasms [Unknown]

NARRATIVE: CASE EVENT DATE: 2017
